FAERS Safety Report 6994478-7 (Version None)
Quarter: 2010Q3

REPORT INFORMATION
  Report Type: 
  Country: None (occurrence: None)
  Receive Date: 20100917
  Receipt Date: 20100908
  Transmission Date: 20110219
  Serious: Yes (Other)
  Sender: FDA-Public Use
  Company Number: US-JNJFOC-20100903231

PATIENT
  Sex: Female
  Weight: 65.77 kg

DRUGS (11)
  1. SANDOZ FENTANYL TRANSDERMAL SYSTEM [Suspect]
     Indication: BACK PAIN
     Route: 062
  2. SANDOZ FENTANYL TRANSDERMAL SYSTEM [Suspect]
     Dosage: 2 PATCHES OF 12.5UG/HR
     Route: 062
  3. SANDOZ FENTANYL TRANSDERMAL SYSTEM [Suspect]
     Route: 062
  4. SYNTHROID [Concomitant]
     Indication: HYPOTHYROIDISM
     Route: 048
  5. FOLIC ACID [Concomitant]
     Indication: NUTRITIONAL SUPPORT
     Route: 048
  6. CALCIUM [Concomitant]
     Indication: NUTRITIONAL SUPPORT
     Route: 048
  7. LIPITOR [Concomitant]
     Indication: BLOOD CHOLESTEROL
     Route: 048
  8. ATENOLOL [Concomitant]
     Indication: HYPERTENSION
     Route: 048
  9. NORVASC [Concomitant]
     Indication: HYPERTENSION
     Route: 048
  10. ASPIRIN [Concomitant]
     Indication: PROPHYLAXIS
     Route: 048
  11. LUMIGAN [Concomitant]
     Indication: GLAUCOMA

REACTIONS (5)
  - DIABETES MELLITUS [None]
  - HYPERSOMNIA [None]
  - OEDEMA PERIPHERAL [None]
  - PAIN [None]
  - THIRST [None]
